FAERS Safety Report 4883136-0 (Version None)
Quarter: 2006Q1

REPORT INFORMATION
  Report Type: 
  Country: None (occurrence: None)
  Receive Date: 20060117
  Receipt Date: 20060117
  Transmission Date: 20060701
  Serious: Yes (Hospitalization)
  Sender: FDA-Public Use
  Company Number: None

PATIENT
  Sex: Female
  Weight: 55 kg

DRUGS (1)
  1. METHOTREXATE [Suspect]
     Indication: SCLERODERMA
     Dosage: 7.5MG   QFRIDAY  PO
     Route: 048

REACTIONS (3)
  - EPISTAXIS [None]
  - HAEMATEMESIS [None]
  - RECTAL HAEMORRHAGE [None]
